FAERS Safety Report 8425291-1 (Version None)
Quarter: 2012Q2

REPORT INFORMATION
  Report Type: 
  Country: None (occurrence: None)
  Receive Date: 20120605
  Receipt Date: 20120605
  Transmission Date: 20120825
  Serious: Yes (Life-Threatening, Hospitalization, Disabling)
  Sender: FDA-Public Use
  Company Number: None

PATIENT
  Sex: Female
  Weight: 79.3795 kg

DRUGS (2)
  1. LOTREL [Suspect]
     Indication: BLOOD PRESSURE
     Dosage: 10/40 1 A DAY DON'T HAVE OLD BOTTLES
     Dates: start: 20100707, end: 20110131
  2. BENICAR [Suspect]
     Indication: BLOOD PRESSURE
     Dosage: 40 MG 1 A DAY DON'T HAVE OLD BOTTLES
     Dates: start: 20100707, end: 20110131

REACTIONS (1)
  - RENAL IMPAIRMENT [None]
